FAERS Safety Report 22314648 (Version 2)
Quarter: 2023Q2

REPORT INFORMATION
  Report Type: Report from Study
  Country: MX (occurrence: MX)
  Receive Date: 20230512
  Receipt Date: 20230614
  Transmission Date: 20230721
  Serious: No
  Sender: FDA-Public Use
  Company Number: MX-002147023-NVSC2023MX108783

PATIENT
  Sex: Male
  Weight: 108 kg

DRUGS (1)
  1. TASIGNA [Suspect]
     Active Substance: NILOTINIB
     Indication: Chronic myeloid leukaemia
     Dosage: UNK
     Route: 048

REACTIONS (6)
  - Obesity [Unknown]
  - Discomfort [Unknown]
  - Pain [Unknown]
  - Chills [Unknown]
  - Weight decreased [Unknown]
  - Decreased appetite [Unknown]
